FAERS Safety Report 14107717 (Version 8)
Quarter: 2017Q4

REPORT INFORMATION
  Report Type: Report from Study
  Country: GB (occurrence: GB)
  Receive Date: 20171019
  Receipt Date: 20171211
  Transmission Date: 20180321
  Serious: Yes (Death, Hospitalization, Other)
  Sender: FDA-Public Use
  Company Number: GB-JNJFOC-20170925006

PATIENT
  Age: 7 Year
  Sex: Male
  Weight: 24 kg

DRUGS (12)
  1. DARATUMUMAB [Suspect]
     Active Substance: DARATUMUMAB
     Indication: T-CELL TYPE ACUTE LEUKAEMIA
     Route: 042
  2. DARATUMUMAB [Suspect]
     Active Substance: DARATUMUMAB
     Indication: T-CELL TYPE ACUTE LEUKAEMIA
     Route: 042
     Dates: start: 20170725, end: 20170822
  3. PREDNISONE. [Concomitant]
     Active Substance: PREDNISONE
     Indication: CHEMOTHERAPY
     Route: 048
     Dates: end: 20170830
  4. RANITIDINE. [Concomitant]
     Active Substance: RANITIDINE
     Indication: ANTACID THERAPY
     Route: 048
  5. PEG-L-ASPARAGINASE [Concomitant]
     Active Substance: PEGASPARGASE
     Indication: CHEMOTHERAPY
     Route: 030
     Dates: end: 20170830
  6. VALGANCICLOVIR. [Concomitant]
     Active Substance: VALGANCICLOVIR
     Indication: PROPHYLAXIS
     Route: 048
  7. ONDANSETRON [Concomitant]
     Active Substance: ONDANSETRON
     Indication: ANTIEMETIC SUPPORTIVE CARE
     Route: 048
  8. METOCLOPRAMIDE. [Concomitant]
     Active Substance: METOCLOPRAMIDE
     Indication: ANTIEMETIC SUPPORTIVE CARE
     Route: 048
  9. VINCRISTINE [Concomitant]
     Active Substance: VINCRISTINE
     Indication: CHEMOTHERAPY
     Route: 042
     Dates: end: 20170830
  10. DOXORUBICIN [Concomitant]
     Active Substance: DOXORUBICIN
     Indication: CHEMOTHERAPY
     Route: 042
     Dates: start: 20170810
  11. URSODEOXYCHOLIC ACID [Concomitant]
     Active Substance: URSODIOL
     Indication: PANCREATITIS
     Route: 048
  12. OMEPRAZOLE. [Concomitant]
     Active Substance: OMEPRAZOLE
     Indication: ANTACID THERAPY
     Route: 048

REACTIONS (4)
  - Infection [Recovering/Resolving]
  - Acute lymphocytic leukaemia [Fatal]
  - Febrile neutropenia [Recovering/Resolving]
  - Herpes oesophagitis [Unknown]

NARRATIVE: CASE EVENT DATE: 20170822
